FAERS Safety Report 7264357-9 (Version None)
Quarter: 2011Q1

REPORT INFORMATION
  Report Type: 
  Country: None (occurrence: None)
  Receive Date: 20110131
  Receipt Date: 20090803
  Transmission Date: 20110831
  Serious: No
  Sender: FDA-Public Use
  Company Number: 2009BI024303

PATIENT
  Sex: Female

DRUGS (1)
  1. TYSABRI [Suspect]
     Indication: MULTIPLE SCLEROSIS
     Route: 042
     Dates: start: 20090630

REACTIONS (8)
  - PANIC ATTACK [None]
  - CHROMATURIA [None]
  - CATHETER SITE HAEMATOMA [None]
  - DIARRHOEA [None]
  - MUSCULAR WEAKNESS [None]
  - URINARY TRACT INFECTION [None]
  - BACTERIAL INFECTION [None]
  - POOR VENOUS ACCESS [None]
